FAERS Safety Report 7376941-2 (Version None)
Quarter: 2011Q1

REPORT INFORMATION
  Report Type: 
  Country: None (occurrence: None)
  Receive Date: 20110328
  Receipt Date: 20110317
  Transmission Date: 20110831
  Serious: Yes (Death, Hospitalization, Other)
  Sender: FDA-Public Use
  Company Number: US-BIOGENIDEC-2010BI010989

PATIENT
  Age: 72 Year
  Sex: Male
  Weight: 88 kg

DRUGS (25)
  1. TYSABRI [Suspect]
     Route: 042
     Dates: start: 20091022, end: 20100922
  2. METOPROLOL SUCCINATE [Concomitant]
     Route: 048
  3. AMPYRA [Concomitant]
     Route: 048
  4. TYSABRI [Suspect]
     Indication: MULTIPLE SCLEROSIS
     Route: 042
     Dates: start: 20071009, end: 20090331
  5. CALCIUM [Concomitant]
     Route: 048
  6. LEXAPRO [Concomitant]
     Route: 048
  7. SIMVASTATIN [Concomitant]
     Route: 048
  8. TRAZODONE [Concomitant]
     Route: 048
  9. ACETAMINOPHEN [Concomitant]
     Route: 048
  10. ALEVE [Concomitant]
     Route: 048
  11. MULTI-VITAMIN [Concomitant]
  12. LISINOPRIL [Concomitant]
     Route: 048
  13. PHENERGAN [Concomitant]
     Indication: NAUSEA
     Route: 048
  14. ZANAFLEX [Concomitant]
     Route: 048
  15. DOCUSATE SODIUM [Concomitant]
     Route: 048
  16. BACLOFEN [Concomitant]
     Route: 048
  17. NABUMETONE [Concomitant]
     Route: 048
  18. VITAMIN D [Concomitant]
     Route: 048
  19. DULCOLAX [Concomitant]
  20. METAMUCIL-2 [Concomitant]
  21. FLOMAX [Concomitant]
  22. OXYCODONE [Concomitant]
     Indication: PAIN
  23. MILK OF MAGNESIA TAB [Concomitant]
     Route: 048
  24. MAGNESIUM GLUCONATE [Concomitant]
     Route: 048
  25. HYDROCHLOROTHIAZIDE AND TRIAMTERENE [Concomitant]

REACTIONS (6)
  - PATHOLOGICAL FRACTURE [None]
  - URINARY TRACT INFECTION [None]
  - GAIT DISTURBANCE [None]
  - DEATH [None]
  - POLLAKIURIA [None]
  - METASTATIC CARCINOMA OF THE BLADDER [None]
